FAERS Safety Report 8934432 (Version 2)
Quarter: 2013Q1

REPORT INFORMATION
  Report Type: Spontaneous
  Country: FR (occurrence: FR)
  Receive Date: 20121129
  Receipt Date: 20130115
  Transmission Date: 20140127
  Serious: Yes (Hospitalization)
  Sender: FDA-Public Use
  Company Number: FR-SANOFI-AVENTIS-2012SA084835

PATIENT
  Age: 65 Year
  Sex: Male

DRUGS (22)
  1. RIFADINE [Suspect]
     Indication: PRODUCT USED FOR UNKNOWN INDICATION
     Route: 065
     Dates: start: 20120927, end: 20121008
  2. RIFADINE [Suspect]
     Indication: PRODUCT USED FOR UNKNOWN INDICATION
     Route: 065
     Dates: start: 20121018, end: 20121021
  3. ROCEPHINE [Suspect]
     Indication: PRODUCT USED FOR UNKNOWN INDICATION
     Route: 042
     Dates: start: 20121018, end: 20121021
  4. ROCEPHINE [Suspect]
     Indication: PRODUCT USED FOR UNKNOWN INDICATION
     Route: 065
     Dates: start: 20120917, end: 20121008
  5. OFLOCET [Concomitant]
     Route: 065
     Dates: start: 20120917, end: 20121021
  6. OFLOCET [Concomitant]
     Dates: start: 20121105
  7. INEXIUM [Concomitant]
     Route: 065
     Dates: start: 20120911, end: 20121021
  8. INEXIUM [Concomitant]
     Dates: start: 201211, end: 201211
  9. GENTAMICIN [Concomitant]
     Dates: start: 20120917
  10. XARELTO [Concomitant]
     Dates: start: 20120927
  11. PERFALGAN [Concomitant]
     Dates: start: 20120927
  12. ACUPAN [Concomitant]
     Dates: start: 20120927
  13. ACTISKENAN [Concomitant]
     Dates: start: 20120927
  14. LASILIX [Concomitant]
     Dates: start: 20120927
  15. PROCORALAN [Concomitant]
     Dates: start: 20120927
  16. HEXAQUINE [Concomitant]
     Dates: start: 20120927
  17. HEPARIN [Concomitant]
     Dates: start: 20121008
  18. CORDARONE [Concomitant]
     Dates: start: 20121008
  19. CLAFORAN [Concomitant]
     Indication: SEPSIS
     Dates: start: 20121008, end: 20121018
  20. CLAFORAN [Concomitant]
     Indication: SEPSIS
     Dates: start: 20121105
  21. TARGOCID [Concomitant]
     Indication: SEPSIS
     Dates: start: 20121008, end: 20121018
  22. TARGOCID [Concomitant]
     Indication: SEPSIS
     Dates: start: 20121105

REACTIONS (1)
  - Stevens-Johnson syndrome [Recovered/Resolved]
